FAERS Safety Report 4456312-9 (Version None)
Quarter: 2004Q3

REPORT INFORMATION
  Report Type: 
  Country: None (occurrence: None)
  Receive Date: 20040902
  Receipt Date: 20040720
  Transmission Date: 20050211
  Serious: No
  Sender: FDA-Public Use
  Company Number: 200419311BWH

PATIENT
  Age: 59 Year
  Sex: Male
  Weight: 74.8435 kg

DRUGS (2)
  1. LEVITRA [Suspect]
     Indication: LIBIDO INCREASED
     Dosage: SEE IMAGE
     Route: 048
     Dates: start: 20040705
  2. LEVITRA [Suspect]
     Indication: LIBIDO INCREASED
     Dosage: SEE IMAGE
     Route: 048
     Dates: start: 20040705

REACTIONS (3)
  - DRUG INEFFECTIVE [None]
  - HYPERHIDROSIS [None]
  - SEXUAL DYSFUNCTION [None]
